FAERS Safety Report 23569381 (Version 1)
Quarter: 2024Q1

REPORT INFORMATION
  Report Type: Spontaneous
  Country: US (occurrence: US)
  Receive Date: 20240227
  Receipt Date: 20240227
  Transmission Date: 20240410
  Serious: Yes (Hospitalization)
  Sender: FDA-Public Use
  Company Number: US-UPSHER-SMITH LABORATORIES, LLC-2024USL00179

PATIENT
  Age: 53 Year
  Sex: Female

DRUGS (3)
  1. AMANTADINE HYDROCHLORIDE [Suspect]
     Active Substance: AMANTADINE HYDROCHLORIDE
     Indication: Tardive dyskinesia
     Dosage: HOME DOSE
  2. AMANTADINE HYDROCHLORIDE [Suspect]
     Active Substance: AMANTADINE HYDROCHLORIDE
     Dosage: ON DAY THREE, LOW-DOSE AMANTADINE WAS REINITIATED
  3. AMANTADINE HYDROCHLORIDE [Suspect]
     Active Substance: AMANTADINE HYDROCHLORIDE
     Dosage: BY DAY SEVEN THE PATIENT RETURNED TO HER HOME AMANTADINE DOSE

REACTIONS (1)
  - Parkinsonism hyperpyrexia syndrome [Recovered/Resolved]
